FAERS Safety Report 10077407 (Version 1)
Quarter: 2014Q2

REPORT INFORMATION
  Report Type: Spontaneous
  Country: FR (occurrence: FR)
  Receive Date: 20140414
  Receipt Date: 20140414
  Transmission Date: 20141212
  Serious: Yes (Hospitalization)
  Sender: FDA-Public Use
  Company Number: FR-EISAI INC-E2020-13882-SPO-FR

PATIENT
  Age: 82 Year
  Sex: Female

DRUGS (8)
  1. ARICEPT [Suspect]
     Indication: DEMENTIA
     Route: 048
     Dates: start: 2012, end: 201401
  2. ARICEPT [Suspect]
     Route: 048
     Dates: start: 201401, end: 20140226
  3. KARDEGIC [Concomitant]
     Indication: PROPHYLAXIS
     Dosage: 75 MG/DAY
     Route: 048
  4. COKENZEN [Concomitant]
     Indication: HYPERTENSION
     Dosage: CANDESARTAN CILEXITIL 16 MG/HCTZ 12.5 MG
     Route: 048
  5. TENORDATE [Concomitant]
     Indication: HYPERTENSION
     Dosage: ATENOLOL 50MG/NIFEDIPINE 20 MG
  6. SIMVASTATIN [Concomitant]
     Indication: HYPERCHOLESTEROLAEMIA
     Dosage: UNKNOWN
     Route: 048
  7. LEVOTHYROX [Concomitant]
     Indication: HYPOTHYROIDISM
     Dosage: 75 MCG/DAY
     Route: 048
  8. LEVOTHYROX [Concomitant]
     Dosage: 100 MCG/DAY
     Route: 048

REACTIONS (6)
  - Hypothermia [Recovered/Resolved]
  - Coma [Recovered/Resolved]
  - Miosis [Recovered/Resolved]
  - Overdose [Recovered/Resolved]
  - Somnolence [Recovered/Resolved]
  - Hyperhidrosis [Recovered/Resolved]
